FAERS Safety Report 15695592 (Version 1)
Quarter: 2018Q4

REPORT INFORMATION
  Report Type: Report from Study
  Country: US (occurrence: US)
  Receive Date: 20181206
  Receipt Date: 20181206
  Transmission Date: 20190205
  Serious: Yes (Hospitalization, Other)
  Sender: FDA-Public Use
  Company Number: US-GILEAD-2018-0378597

PATIENT
  Age: 30 Year
  Sex: Female

DRUGS (14)
  1. AZTREONAM LYSINE [Suspect]
     Active Substance: AZTREONAM LYSINE
     Indication: CYSTIC FIBROSIS
     Dosage: 75 MG, TID
     Route: 055
     Dates: start: 20140609
  2. HYDROMORPHONE [Concomitant]
     Active Substance: HYDROMORPHONE
  3. LINEZOLID. [Concomitant]
     Active Substance: LINEZOLID
  4. IVACAFTOR [Concomitant]
     Active Substance: IVACAFTOR
  5. PREDNISONE. [Concomitant]
     Active Substance: PREDNISONE
  6. COMBIVENT [Concomitant]
     Active Substance: ALBUTEROL SULFATE\IPRATROPIUM BROMIDE
  7. DEKA [Concomitant]
  8. LEVOFLOXACIN. [Concomitant]
     Active Substance: LEVOFLOXACIN
  9. MOMETASONE [Concomitant]
     Active Substance: MOMETASONE
  10. TEZACAFTOR [Concomitant]
     Active Substance: TEZACAFTOR
  11. DOXYCYCLINE. [Concomitant]
     Active Substance: DOXYCYCLINE
  12. POTASSIUM CHLORIDE. [Concomitant]
     Active Substance: POTASSIUM CHLORIDE
  13. CLOTRIMAZOLE. [Concomitant]
     Active Substance: CLOTRIMAZOLE
  14. AZITHROMYCIN ANHYDROUS. [Concomitant]
     Active Substance: AZITHROMYCIN ANHYDROUS

REACTIONS (1)
  - Lung infection [Unknown]

NARRATIVE: CASE EVENT DATE: 201811
